FAERS Safety Report 8189576-9 (Version None)
Quarter: 2012Q1

REPORT INFORMATION
  Report Type: 
  Country: None (occurrence: None)
  Receive Date: 20120307
  Receipt Date: 20120228
  Transmission Date: 20120608
  Serious: Yes (Other)
  Sender: FDA-Public Use
  Company Number: KR-JNJFOC-20120300294

PATIENT
  Age: 73 Year
  Sex: Male

DRUGS (3)
  1. DURAGESIC-100 [Suspect]
     Indication: ANALGESIC THERAPY
     Route: 062
     Dates: start: 20120220
  2. UNKNOWN MEDICATION [Concomitant]
     Indication: PROSTATIC DISORDER
     Route: 065
  3. UNSPECIFIED ASTHMA MEDICATION [Concomitant]
     Indication: ASTHMA
     Route: 065

REACTIONS (3)
  - DYSPNOEA [None]
  - MENTAL DISORDER [None]
  - AMNESIA [None]
